FAERS Safety Report 17457989 (Version 1)
Quarter: 2020Q1

REPORT INFORMATION
  Report Type: Report from Study
  Country: US (occurrence: US)
  Receive Date: 20200225
  Receipt Date: 20200225
  Transmission Date: 20200409
  Serious: No
  Sender: FDA-Public Use
  Company Number: NVSC2020US052912

PATIENT
  Sex: Female

DRUGS (1)
  1. ENTRESTO [Suspect]
     Active Substance: SACUBITRIL\VALSARTAN
     Indication: EJECTION FRACTION
     Route: 065
     Dates: start: 20200220

REACTIONS (4)
  - Nausea [Unknown]
  - Fatigue [Unknown]
  - Feeding disorder [Unknown]
  - Hypersomnia [Unknown]
